FAERS Safety Report 4948935-5 (Version None)
Quarter: 2006Q1

REPORT INFORMATION
  Report Type: 
  Country: None (occurrence: None)
  Receive Date: 20060321
  Receipt Date: 20060315
  Transmission Date: 20060701
  Serious: Yes (Death, Hospitalization)
  Sender: FDA-Public Use
  Company Number: PHEH2006US03561

PATIENT
  Age: 77 Year
  Sex: Female

DRUGS (1)
  1. MIACALCIN [Suspect]
     Indication: OSTEOPOROSIS
     Dosage: 200 IU, QD
     Dates: start: 20020101, end: 20030501

REACTIONS (6)
  - ASTHENIA [None]
  - CARDIAC DISORDER [None]
  - DEATH [None]
  - PNEUMONIA [None]
  - RESPIRATORY DISORDER [None]
  - SEPSIS [None]
